FAERS Safety Report 6952946-8 (Version None)
Quarter: 2010Q3

REPORT INFORMATION
  Report Type: 
  Country: None (occurrence: None)
  Receive Date: 20100829
  Receipt Date: 20100525
  Transmission Date: 20110219
  Serious: No
  Sender: FDA-Public Use
  Company Number: US-ABBOTT-10P-163-0646823-00

PATIENT
  Sex: Male
  Weight: 92.162 kg

DRUGS (4)
  1. NIASPAN [Suspect]
     Indication: STENT PLACEMENT
     Dates: start: 20030501
  2. VYTORIN [Concomitant]
     Indication: PRODUCT USED FOR UNKNOWN INDICATION
  3. FLOMAX [Concomitant]
     Indication: PRODUCT USED FOR UNKNOWN INDICATION
  4. ASPIRIN [Concomitant]
     Indication: PRODUCT USED FOR UNKNOWN INDICATION
     Dosage: TAKE BEFORE NIASPAN COATED

REACTIONS (1)
  - PARAESTHESIA [None]
